FAERS Safety Report 6968137-0 (Version None)
Quarter: 2010Q3

REPORT INFORMATION
  Report Type: 
  Country: None (occurrence: None)
  Receive Date: 20100901
  Receipt Date: 20100827
  Transmission Date: 20110219
  Serious: Yes (Hospitalization, Other)
  Sender: FDA-Public Use
  Company Number: 20109187

PATIENT
  Sex: Female

DRUGS (1)
  1. LIORESAL [Suspect]
     Indication: MUSCLE SPASTICITY
     Dosage: DAILY, INTRATHECAL
     Route: 037

REACTIONS (6)
  - CULTURE POSITIVE [None]
  - FURUNCLE [None]
  - INCISION SITE COMPLICATION [None]
  - MEDICAL DEVICE COMPLICATION [None]
  - OPEN WOUND [None]
  - STAPHYLOCOCCAL INFECTION [None]
